FAERS Safety Report 6265287-1 (Version None)
Quarter: 2009Q3

REPORT INFORMATION
  Report Type: 
  Country: None (occurrence: None)
  Receive Date: 20090709
  Receipt Date: 20090709
  Transmission Date: 20100115
  Serious: Yes (Hospitalization)
  Sender: FDA-Public Use
  Company Number: None

PATIENT
  Sex: Female
  Weight: 103.4201 kg

DRUGS (1)
  1. CELEBREX [Suspect]
     Indication: ARTHRITIS
     Dosage: 200 MG PO
     Route: 048
     Dates: start: 20090415, end: 20090517

REACTIONS (5)
  - ASTHENIA [None]
  - FALL [None]
  - FEELING ABNORMAL [None]
  - MENTAL IMPAIRMENT [None]
  - OEDEMA PERIPHERAL [None]
